FAERS Safety Report 17227767 (Version 2)
Quarter: 2020Q1

REPORT INFORMATION
  Report Type: Report from Study
  Country: ES (occurrence: ES)
  Receive Date: 20200103
  Receipt Date: 20200316
  Transmission Date: 20200409
  Serious: Yes (Other)
  Sender: FDA-Public Use
  Company Number: ES-AUROBINDO-AUR-APL-2019-109124

PATIENT
  Age: 43 Year
  Sex: Male

DRUGS (1)
  1. DUTASTERIDE SOFT CAPSULES [Suspect]
     Active Substance: DUTASTERIDE
     Indication: ANDROGENETIC ALOPECIA
     Dosage: 0.5 MILLIGRAM, EVERY WEEK (5 CAPSULES OF 0.5 MG PER WEEK)
     Route: 048
     Dates: start: 201701

REACTIONS (3)
  - Product use in unapproved indication [Unknown]
  - Erectile dysfunction [Recovered/Resolved]
  - Off label use [Unknown]
